FAERS Safety Report 14986875 (Version 7)
Quarter: 2019Q2

REPORT INFORMATION
  Report Type: Spontaneous
  Country: US (occurrence: US)
  Receive Date: 20180608
  Receipt Date: 20190524
  Transmission Date: 20190711
  Serious: Yes (Hospitalization)
  Sender: FDA-Public Use
  Company Number: US-BRISTOL-MYERS SQUIBB COMPANY-BMS-2018-052921

PATIENT
  Age: 41 Year
  Sex: Female
  Weight: 129.25 kg

DRUGS (1)
  1. ORENCIA [Suspect]
     Active Substance: ABATACEPT
     Indication: RHEUMATOID ARTHRITIS
     Dosage: 125 MG, QWK
     Route: 058
     Dates: start: 201803

REACTIONS (4)
  - Influenza [Unknown]
  - Product dose omission [Unknown]
  - Nausea [Unknown]
  - Arthropathy [Unknown]

NARRATIVE: CASE EVENT DATE: 20180604
